FAERS Safety Report 7949931-6 (Version None)
Quarter: 2011Q4

REPORT INFORMATION
  Report Type: 
  Country: None (occurrence: None)
  Receive Date: 20111130
  Receipt Date: 20111121
  Transmission Date: 20120403
  Serious: Yes (Hospitalization, Other)
  Sender: FDA-Public Use
  Company Number: JP-BRISTOL-MYERS SQUIBB COMPANY-16226136

PATIENT
  Age: 82 Year
  Sex: Male

DRUGS (1)
  1. TAXOL [Suspect]
     Dosage: 2ND DOSE ON 03JUN11(120MG),3RD DOSE ON 08NOV11(60MG)
     Dates: start: 20110527

REACTIONS (2)
  - CYSTITIS HAEMORRHAGIC [None]
  - ATRIAL FIBRILLATION [None]
